FAERS Safety Report 8423971-5 (Version None)
Quarter: 2012Q2

REPORT INFORMATION
  Report Type: 
  Country: None (occurrence: None)
  Receive Date: 20120608
  Receipt Date: 20120528
  Transmission Date: 20120825
  Serious: Yes (Hospitalization, Other)
  Sender: FDA-Public Use
  Company Number: GB-ELI_LILLY_AND_COMPANY-GB201203005022

PATIENT
  Sex: Male
  Weight: 89 kg

DRUGS (2)
  1. BYETTA [Suspect]
     Indication: TYPE 2 DIABETES MELLITUS
     Dosage: 10 MG, BID
     Route: 058
     Dates: start: 20111005
  2. METFORMIN HYDROCHLORIDE [Concomitant]
     Dosage: 500 G, UNK

REACTIONS (2)
  - OVERWEIGHT [None]
  - ISCHAEMIC STROKE [None]
